FAERS Safety Report 20094652 (Version 1)
Quarter: 2021Q4

REPORT INFORMATION
  Report Type: Spontaneous
  Country: US (occurrence: US)
  Receive Date: 20211122
  Receipt Date: 20211122
  Transmission Date: 20220303
  Serious: No
  Sender: FDA-Public Use
  Company Number: US-AUROBINDO-AUR-APL-2021-040789

PATIENT
  Age: 47 Year
  Sex: Male
  Weight: 72.57 kg

DRUGS (2)
  1. MOXIFLOXACIN [Suspect]
     Active Substance: MOXIFLOXACIN
     Indication: Eye infection
     Dosage: UNK, TWO TIMES A DAY (01 DROP IN THE MORNING AND 01 DROP AT NIGHT)
     Route: 065
  2. NATAMYCINE [Concomitant]
     Indication: Product used for unknown indication
     Dosage: UNK
     Route: 065

REACTIONS (3)
  - Eye irritation [Recovered/Resolved]
  - Foreign body in eye [Recovered/Resolved]
  - Product contamination physical [Unknown]
